FAERS Safety Report 17022963 (Version 2)
Quarter: 2019Q4

REPORT INFORMATION
  Report Type: Spontaneous
  Country: US (occurrence: US)
  Receive Date: 20191112
  Receipt Date: 20191211
  Transmission Date: 20200122
  Serious: Yes (Hospitalization)
  Sender: FDA-Public Use
  Company Number: US-TEVA-2019-US-1135242

PATIENT
  Age: 39 Year
  Sex: Female

DRUGS (6)
  1. PACLITAXEL. [Suspect]
     Active Substance: PACLITAXEL
     Indication: INFLAMMATORY CARCINOMA OF THE BREAST
  2. CYCLOPHOSPHAMIDE. [Suspect]
     Active Substance: CYCLOPHOSPHAMIDE
     Indication: NEOADJUVANT THERAPY
     Route: 065
  3. PACLITAXEL. [Suspect]
     Active Substance: PACLITAXEL
     Indication: NEOADJUVANT THERAPY
     Route: 065
  4. ADRIAMYCIN [Suspect]
     Active Substance: DOXORUBICIN HYDROCHLORIDE
     Indication: NEOADJUVANT THERAPY
     Route: 065
  5. TRASTUZUMAB. [Suspect]
     Active Substance: TRASTUZUMAB
     Indication: NEOADJUVANT THERAPY
     Route: 065
  6. PERTUZUMAB. [Suspect]
     Active Substance: PERTUZUMAB
     Indication: NEOADJUVANT THERAPY
     Route: 065

REACTIONS (5)
  - Opsoclonus myoclonus [Recovered/Resolved]
  - Meningitis aseptic [Recovered/Resolved]
  - West Nile viral infection [Recovered/Resolved]
  - Hypogammaglobulinaemia [Recovered/Resolved]
  - Encephalitis viral [Recovered/Resolved]
